FAERS Safety Report 8484610-0 (Version None)
Quarter: 2012Q3

REPORT INFORMATION
  Report Type: 
  Country: None (occurrence: None)
  Receive Date: 20120703
  Receipt Date: 20120625
  Transmission Date: 20120928
  Serious: Yes (Hospitalization)
  Sender: FDA-Public Use
  Company Number: JP-BAYER-2012-059131

PATIENT
  Age: 78 Year
  Sex: Male

DRUGS (2)
  1. ASPIRIN [Suspect]
     Route: 048
  2. WARFARIN POTASSIUM [Suspect]
     Route: 048

REACTIONS (3)
  - GASTRIC CANCER [None]
  - ADENOCARCINOMA [None]
  - DIVERTICULUM INTESTINAL HAEMORRHAGIC [None]
